FAERS Safety Report 21309136 (Version 1)
Quarter: 2022Q3

REPORT INFORMATION
  Report Type: Spontaneous
  Country: US (occurrence: US)
  Receive Date: 20220908
  Receipt Date: 20220908
  Transmission Date: 20221026
  Serious: Yes (Hospitalization, Other)
  Sender: FDA-Public Use
  Company Number: US-SA-SAC20220906001689

PATIENT
  Age: 61 Year
  Sex: Female
  Weight: 49 kg

DRUGS (3)
  1. HECTOROL [Suspect]
     Active Substance: DOXERCALCIFEROL
     Indication: Mineral metabolism disorder
     Dosage: 6UG, FREQUENCY EVERY TREATMENT
     Route: 042
     Dates: start: 20220818, end: 20220820
  2. HECTOROL [Suspect]
     Active Substance: DOXERCALCIFEROL
     Indication: Hypocalcaemia
  3. SODIUM CHLORIDE [Concomitant]
     Active Substance: SODIUM CHLORIDE
     Dosage: UNK
     Route: 042

REACTIONS (5)
  - Muscle twitching [Unknown]
  - Chest pain [Unknown]
  - Haemodialysis [Unknown]
  - Unresponsive to stimuli [Unknown]
  - Muscle spasms [Recovered/Resolved]

NARRATIVE: CASE EVENT DATE: 20220820
